FAERS Safety Report 7498719-1 (Version None)
Quarter: 2011Q2

REPORT INFORMATION
  Report Type: 
  Country: None (occurrence: None)
  Receive Date: 20110524
  Receipt Date: 20110512
  Transmission Date: 20111010
  Serious: Yes (Other)
  Sender: FDA-Public Use
  Company Number: CA-JNJFOC-20110505949

PATIENT
  Sex: Female
  Weight: 70.31 kg

DRUGS (9)
  1. STELARA [Suspect]
     Route: 058
     Dates: start: 20090430
  2. CRESTOR [Concomitant]
  3. STELARA [Suspect]
     Indication: PSORIASIS
     Route: 058
     Dates: end: 20090527
  4. AVAPRO [Concomitant]
  5. NEXIUM [Concomitant]
  6. TERAZOSIN HCL [Concomitant]
  7. STELARA [Suspect]
     Route: 058
     Dates: start: 20110314
  8. NADOLOL [Concomitant]
  9. HYDROCHLOROTHIAZIDE [Concomitant]

REACTIONS (7)
  - HYPERHIDROSIS [None]
  - FATIGUE [None]
  - OEDEMA PERIPHERAL [None]
  - BACK PAIN [None]
  - SINUS DISORDER [None]
  - DIZZINESS [None]
  - DRUG INEFFECTIVE [None]
